FAERS Safety Report 15575683 (Version 1)
Quarter: 2018Q4

REPORT INFORMATION
  Report Type: Spontaneous
  Country: IN (occurrence: IN)
  Receive Date: 20181101
  Receipt Date: 20181101
  Transmission Date: 20190205
  Serious: Yes (Other)
  Sender: FDA-Public Use
  Company Number: None

PATIENT
  Age: 33 Year
  Sex: Female
  Weight: 64 kg

DRUGS (1)
  1. MONOCEF O [Suspect]
     Active Substance: CEFPODOXIME PROXETIL

REACTIONS (3)
  - Injection site pain [None]
  - Product formulation issue [None]
  - Product use complaint [None]

NARRATIVE: CASE EVENT DATE: 20180928
